FAERS Safety Report 9820396 (Version 1)
Quarter: 2013Q4

REPORT INFORMATION
  Report Type: Spontaneous
  Country: US (occurrence: None)
  Receive Date: 20131028
  Receipt Date: 20131028
  Transmission Date: 20140711
  Serious: Yes (Hospitalization)
  Sender: FDA-Public Use
  Company Number: 2013US001534

PATIENT
  Age: 59 Year
  Sex: Male
  Weight: 94 kg

DRUGS (5)
  1. ICLUSIG [Suspect]
     Indication: CHRONIC MYELOID LEUKAEMIA
     Route: 048
  2. LISINOPRIL (LISINOPRIL) [Concomitant]
  3. LASIX (FUROSEMIDE) [Concomitant]
  4. GLYBURIDE (GLYBURIDE) (GLYBURIDE) [Concomitant]
  5. CARDIZEM (DILTIAZEM) (UNKNOWN) (DILTIAZEM) [Concomitant]

REACTIONS (2)
  - Atrial fibrillation [None]
  - Fatigue [None]
